FAERS Safety Report 4982478-8 (Version None)
Quarter: 2006Q2

REPORT INFORMATION
  Report Type: 
  Country: None (occurrence: None)
  Receive Date: 20060421
  Receipt Date: 20060414
  Transmission Date: 20061013
  Serious: Yes (Other)
  Sender: FDA-Public Use
  Company Number: 2006051466

PATIENT

DRUGS (1)
  1. DRAMAMINE [Suspect]
     Indication: MOTION SICKNESS
     Dosage: 1/2 TABLET ONCE, ORAL
     Route: 048
     Dates: start: 20060414, end: 20060414

REACTIONS (4)
  - CONVULSION [None]
  - DROOLING [None]
  - HYPOAESTHESIA ORAL [None]
  - MUSCLE TWITCHING [None]
